FAERS Safety Report 23795332 (Version 2)
Quarter: 2024Q2

REPORT INFORMATION
  Report Type: Spontaneous
  Country: PL (occurrence: PL)
  Receive Date: 20240429
  Receipt Date: 20240508
  Transmission Date: 20240716
  Serious: Yes (Other)
  Sender: FDA-Public Use
  Company Number: PL-AMGEN-POLSP2024073572

PATIENT
  Age: 70 Year
  Sex: Male

DRUGS (13)
  1. FILGRASTIM [Suspect]
     Active Substance: FILGRASTIM
     Dosage: UNK
     Route: 065
     Dates: start: 20221228, end: 20221229
  2. KYPROLIS [Suspect]
     Active Substance: CARFILZOMIB
     Indication: Plasma cell myeloma
     Dosage: CYCLE 4
     Route: 065
     Dates: start: 20230517
  3. KYPROLIS [Suspect]
     Active Substance: CARFILZOMIB
     Dosage: CYCLE 2 REDUCTION OF KRD TO 15 MG
     Route: 065
     Dates: start: 20230315
  4. KYPROLIS [Suspect]
     Active Substance: CARFILZOMIB
     Dosage: 1 CYCLE
     Route: 065
     Dates: start: 20230201, end: 20230202
  5. LENALIDOMIDE [Suspect]
     Active Substance: LENALIDOMIDE
     Indication: Plasma cell myeloma
     Dosage: 1 CYCLE
     Route: 065
     Dates: start: 20230201, end: 20230202
  6. LENALIDOMIDE [Suspect]
     Active Substance: LENALIDOMIDE
     Dosage: CYCLE 4
     Route: 065
     Dates: start: 20230517
  7. LENALIDOMIDE [Suspect]
     Active Substance: LENALIDOMIDE
     Dosage: CYCLE 2 REDUCTION OF KRD TO 15 MG
     Route: 065
     Dates: start: 20230315
  8. DEXAMETHASONE [Suspect]
     Active Substance: DEXAMETHASONE
     Indication: Plasma cell myeloma
     Dosage: CYCLE 4
     Route: 065
     Dates: start: 20230517
  9. DEXAMETHASONE [Suspect]
     Active Substance: DEXAMETHASONE
     Dosage: CYCLE 2 REDUCTION OF KRD TO 15 MG
     Route: 065
     Dates: start: 20230315
  10. DEXAMETHASONE [Suspect]
     Active Substance: DEXAMETHASONE
     Dosage: 1 CYCLE
     Route: 065
     Dates: start: 20230202, end: 20230202
  11. FLUC [FLUCONAZOLE] [Concomitant]
     Dosage: UNK
     Route: 065
  12. CEFTRIAXONE SODIUM [Concomitant]
     Active Substance: CEFTRIAXONE SODIUM
     Dosage: UNK
     Route: 065
  13. MELPHALAN [Concomitant]
     Active Substance: MELPHALAN
     Dosage: UNK
     Route: 065
     Dates: start: 20230628

REACTIONS (3)
  - Acute kidney injury [Unknown]
  - Neoplasm progression [Unknown]
  - Nausea [Unknown]

NARRATIVE: CASE EVENT DATE: 20230101
